FAERS Safety Report 8987256 (Version 2)
Quarter: 2013Q1

REPORT INFORMATION
  Report Type: Report from Study
  Country: ES (occurrence: ES)
  Receive Date: 20121226
  Receipt Date: 20130109
  Transmission Date: 20140127
  Serious: Yes (Life-Threatening, Hospitalization)
  Sender: FDA-Public Use
  Company Number: ES-ROCHE-1174219

PATIENT
  Age: 71 Year
  Sex: Female

DRUGS (4)
  1. TRASTUZUMAB [Suspect]
     Indication: BREAST CANCER
     Route: 065
  2. ADRIAMYCIN [Concomitant]
  3. CYCLOPHOSPHAMIDE [Concomitant]
  4. PACLITAXEL [Concomitant]

REACTIONS (1)
  - Acute pulmonary oedema [Recovered/Resolved]
